FAERS Safety Report 5127583-0 (Version None)
Quarter: 2006Q4

REPORT INFORMATION
  Report Type: 
  Country: None (occurrence: None)
  Receive Date: 20061016
  Receipt Date: 20061005
  Transmission Date: 20070319
  Serious: Yes (Hospitalization)
  Sender: FDA-Public Use
  Company Number: NO-AVENTIS-200620460GDDC

PATIENT
  Age: 55 Year
  Sex: Female

DRUGS (2)
  1. TAXOTERE [Suspect]
     Indication: BREAST CANCER METASTATIC
     Route: 042
     Dates: start: 20060816, end: 20060816
  2. XELODA [Suspect]
     Indication: BREAST CANCER METASTATIC
     Dosage: DOSE: 1.3 G X 2
     Route: 048
     Dates: start: 20060816, end: 20060829

REACTIONS (5)
  - CLOSTRIDIUM DIFFICILE COLITIS [None]
  - CYSTITIS HAEMORRHAGIC [None]
  - MOUTH ULCERATION [None]
  - PROCTITIS ULCERATIVE [None]
  - SKIN ULCER [None]
